FAERS Safety Report 22148045 (Version 1)
Quarter: 2023Q1

REPORT INFORMATION
  Report Type: Spontaneous
  Country: US (occurrence: None)
  Receive Date: 20230328
  Receipt Date: 20230328
  Transmission Date: 20230417
  Serious: Yes (Life-Threatening, Hospitalization, Disabling, Other)
  Sender: FDA-Public Use
  Company Number: None

PATIENT
  Age: 45 Year
  Sex: Male
  Weight: 121.5 kg

DRUGS (5)
  1. HYDROCHLOROTHIAZIDE [Suspect]
     Active Substance: HYDROCHLOROTHIAZIDE
     Indication: Hypertension
     Dosage: OTHER QUANTITY : 1 TABLET(S);?FREQUENCY : DAILY;?
     Route: 048
     Dates: start: 20210309, end: 20210323
  2. ADVAIR HFA [Concomitant]
     Active Substance: FLUTICASONE PROPIONATE\SALMETEROL XINAFOATE
  3. ALBUTEROL [Concomitant]
     Active Substance: ALBUTEROL
  4. SINGULAIR [Concomitant]
     Active Substance: MONTELUKAST SODIUM
  5. METOPROLOL [Concomitant]
     Active Substance: METOPROLOL

REACTIONS (10)
  - Acute myocardial infarction [None]
  - Loss of consciousness [None]
  - Blood magnesium decreased [None]
  - Hypokalaemia [None]
  - Left ventricular dysfunction [None]
  - Emotional disorder [None]
  - Product prescribing issue [None]
  - Traumatic renal injury [None]
  - Impaired quality of life [None]
  - Ventricular tachycardia [None]

NARRATIVE: CASE EVENT DATE: 20210323
